FAERS Safety Report 4810272-7 (Version None)
Quarter: 2005Q4

REPORT INFORMATION
  Report Type: 
  Country: None (occurrence: None)
  Receive Date: 20051024
  Receipt Date: 20051004
  Transmission Date: 20060501
  Serious: Yes (Hospitalization)
  Sender: FDA-Public Use
  Company Number: JP_050406409

PATIENT
  Age: 65 Year
  Sex: Female
  Weight: 44 kg

DRUGS (2)
  1. EVISTA [Suspect]
     Indication: OSTEOPOROSIS
     Dosage: 60 MG/1 DAY
     Dates: start: 20041207, end: 20050420
  2. ALFAROL (ALFACALCIDOL) [Concomitant]

REACTIONS (4)
  - BLOOD DISORDER [None]
  - CEREBROVASCULAR ARTERIOVENOUS MALFORMATION [None]
  - EYE SWELLING [None]
  - VISUAL ACUITY REDUCED [None]
